FAERS Safety Report 5237218-4 (Version None)
Quarter: 2007Q1

REPORT INFORMATION
  Report Type: 
  Country: None (occurrence: None)
  Receive Date: 20061208
  Receipt Date: 20050525
  Transmission Date: 20070707
  Serious: Yes (Other)
  Sender: FDA-Public Use
  Company Number: 2005UW08104

PATIENT
  Age: 74 Year
  Sex: Female
  Weight: 65.77 kg

DRUGS (3)
  1. CRESTOR [Suspect]
     Indication: BLOOD CHOLESTEROL INCREASED
     Dosage: 20 MG PO
     Route: 048
     Dates: start: 20040618, end: 20041201
  2. BENICAR [Concomitant]
  3. THYROID MEDICINE [Concomitant]

REACTIONS (3)
  - BACK PAIN [None]
  - LOSS OF CONSCIOUSNESS [None]
  - PAIN IN EXTREMITY [None]
